FAERS Safety Report 5363640-1 (Version None)
Quarter: 2007Q2

REPORT INFORMATION
  Report Type: 
  Country: None (occurrence: None)
  Receive Date: 20070618
  Receipt Date: 20070618
  Transmission Date: 20071010
  Serious: Yes (Hospitalization)
  Sender: FDA-Public Use
  Company Number: None

PATIENT
  Sex: Female
  Weight: 89.58 kg

DRUGS (2)
  1. CARBOPLATIN [Suspect]
     Dosage: 447 MG
  2. TAXOL [Suspect]
     Dosage: 325 MG

REACTIONS (4)
  - CATHETER SITE PAIN [None]
  - CHOLECYSTITIS [None]
  - FEBRILE NEUTROPENIA [None]
  - STAPHYLOCOCCAL BACTERAEMIA [None]
